FAERS Safety Report 14012372 (Version 2)
Quarter: 2017Q4

REPORT INFORMATION
  Report Type: Report from Study
  Country: JP (occurrence: JP)
  Receive Date: 20170926
  Receipt Date: 20171211
  Transmission Date: 20180321
  Serious: Yes (Hospitalization)
  Sender: FDA-Public Use
  Company Number: PHHY2017JP140606

PATIENT
  Age: 68 Year
  Sex: Male

DRUGS (96)
  1. SALOBEL [Concomitant]
     Active Substance: ALLOPURINOL
     Dosage: 100 MG, QD
     Route: 048
     Dates: start: 20160224, end: 20160326
  2. NOVORAPID [Concomitant]
     Active Substance: INSULIN ASPART
     Dosage: 8 IU, QD
     Route: 051
     Dates: start: 20160229, end: 20160229
  3. CEFAZOLIN SODIUM. [Concomitant]
     Active Substance: CEFAZOLIN SODIUM
     Indication: PRODUCT USED FOR UNKNOWN INDICATION
     Dosage: 5 G, QD
     Route: 051
     Dates: start: 20160225, end: 20160225
  4. NORMAL SALINE [Concomitant]
     Active Substance: SODIUM CHLORIDE
     Dosage: 90 ML, QD
     Route: 051
     Dates: start: 20160303, end: 20160303
  5. NORMAL SALINE [Concomitant]
     Active Substance: SODIUM CHLORIDE
     Dosage: 290 ML, QD
     Route: 051
     Dates: start: 20160306, end: 20160306
  6. NORMAL SALINE [Concomitant]
     Active Substance: SODIUM CHLORIDE
     Dosage: 140 ML, QD
     Route: 051
     Dates: start: 20160309, end: 20160314
  7. LACTEC [Concomitant]
     Active Substance: CALCIUM CHLORIDE ANHYDROUS\POTASSIUM CHLORIDE\SODIUM CHLORIDE\SODIUM LACTATE
     Dosage: 500 ML, QD
     Route: 051
     Dates: start: 20160227, end: 20160227
  8. SOLU-CORTEF [Concomitant]
     Active Substance: HYDROCORTISONE SODIUM SUCCINATE
     Indication: PRODUCT USED FOR UNKNOWN INDICATION
     Dosage: 100 MG, QD
     Route: 051
     Dates: start: 20160225, end: 20160226
  9. WARFARIN [Concomitant]
     Active Substance: WARFARIN
     Dosage: 2 MG, QD
     Route: 048
     Dates: start: 20160312, end: 20160314
  10. WARFARIN [Concomitant]
     Active Substance: WARFARIN
     Dosage: 1.5 MG, QD
     Route: 048
     Dates: start: 20160315, end: 20160320
  11. WARFARIN [Concomitant]
     Active Substance: WARFARIN
     Dosage: 1.25 MG, QD
     Route: 048
     Dates: start: 20160324, end: 20160326
  12. VITAMEDIN [Concomitant]
     Active Substance: CYANOCOBALAMIN\PYRIDOXINE HYDROCHLORIDE\THIAMINE
     Indication: PRODUCT USED FOR UNKNOWN INDICATION
     Dosage: 1 DF, QD
     Route: 042
     Dates: start: 20160305, end: 20160305
  13. AVAPRO [Concomitant]
     Active Substance: IRBESARTAN
     Dosage: 100 MG, QD
     Route: 048
     Dates: start: 20160226, end: 20160326
  14. MAGMITT [Concomitant]
     Active Substance: MAGNESIUM OXIDE
     Indication: PRODUCT USED FOR UNKNOWN INDICATION
     Dosage: 500 MG, QD
     Route: 048
     Dates: start: 20160223, end: 20160223
  15. FENTANYL. [Concomitant]
     Active Substance: FENTANYL
     Indication: PRODUCT USED FOR UNKNOWN INDICATION
     Dosage: 2 MG, QD
     Route: 051
     Dates: start: 20160225, end: 20160225
  16. ARTIST [Concomitant]
     Active Substance: CARVEDILOL
     Indication: PRODUCT USED FOR UNKNOWN INDICATION
     Dosage: 2.5 MG, BID
     Route: 048
     Dates: start: 20160303, end: 20160326
  17. NOVASTAN [Suspect]
     Active Substance: ARGATROBAN
     Dosage: 0.238 UG/KG,1 MIN, QD
     Route: 041
     Dates: start: 20160302, end: 20160303
  18. ZETIA [Concomitant]
     Active Substance: EZETIMIBE
     Dosage: 10 MG, QD
     Route: 048
     Dates: start: 20160226, end: 20160326
  19. NEXIUM [Concomitant]
     Active Substance: ESOMEPRAZOLE MAGNESIUM
     Dosage: 20 MG, QD
     Route: 048
     Dates: start: 20160226, end: 20160326
  20. CEFAZOLIN SODIUM. [Concomitant]
     Active Substance: CEFAZOLIN SODIUM
     Dosage: 2 G, QD
     Route: 051
     Dates: start: 20160226, end: 20160227
  21. HUMULIN R [Concomitant]
     Active Substance: INSULIN HUMAN
     Dosage: 7 IU, QD
     Route: 051
     Dates: start: 20160226, end: 20160226
  22. HUMULIN R [Concomitant]
     Active Substance: INSULIN HUMAN
     Dosage: 8 IU, QD
     Route: 051
     Dates: start: 20160227, end: 20160227
  23. HUMULIN R [Concomitant]
     Active Substance: INSULIN HUMAN
     Dosage: 4 IU, QD
     Route: 051
     Dates: start: 20160228, end: 20160229
  24. WARFARIN [Concomitant]
     Active Substance: WARFARIN
     Indication: PRODUCT USED FOR UNKNOWN INDICATION
     Dosage: 4 MG, QD
     Route: 048
     Dates: start: 20160226, end: 20160226
  25. WARFARIN [Concomitant]
     Active Substance: WARFARIN
     Dosage: 3 MG, QD
     Route: 048
     Dates: start: 20160227, end: 20160227
  26. EDARAVONE [Concomitant]
     Active Substance: EDARAVONE
     Indication: PRODUCT USED FOR UNKNOWN INDICATION
     Dosage: 30 MG, QD
     Route: 041
     Dates: start: 20160304, end: 20160313
  27. CEFTRIAXONE NA [Concomitant]
     Active Substance: CEFTRIAXONE
     Indication: PRODUCT USED FOR UNKNOWN INDICATION
     Dosage: 1 G, QD
     Route: 041
     Dates: start: 20160304, end: 20160304
  28. GLUCOSE [Concomitant]
     Active Substance: DEXTROSE
     Indication: PRODUCT USED FOR UNKNOWN INDICATION
     Dosage: 40 ML, QD
     Route: 051
     Dates: start: 20160309, end: 20160309
  29. ACRINOL [Concomitant]
     Indication: PRODUCT USED FOR UNKNOWN INDICATION
     Dosage: UNK
     Route: 061
     Dates: start: 20160312, end: 20160326
  30. BACTROBAN [Concomitant]
     Active Substance: MUPIROCIN\MUPIROCIN CALCIUM
     Indication: PRODUCT USED FOR UNKNOWN INDICATION
     Dosage: UNK
     Route: 061
  31. MIYA-BM [Concomitant]
     Active Substance: CLOSTRIDIUM BUTYRICUM SPORES STRAIN M-55
     Indication: PRODUCT USED FOR UNKNOWN INDICATION
     Dosage: 1 DF, TID
     Route: 048
     Dates: start: 20160222, end: 20160224
  32. ATORVASTATIN [Concomitant]
     Active Substance: ATORVASTATIN
     Indication: PRODUCT USED FOR UNKNOWN INDICATION
     Dosage: 10 MG, QD
     Route: 048
     Dates: start: 20160222, end: 20160224
  33. PREDNISOLONE. [Concomitant]
     Active Substance: PREDNISOLONE
     Indication: PRODUCT USED FOR UNKNOWN INDICATION
     Dosage: 3 MG, QD
     Route: 048
     Dates: start: 20160222, end: 20160326
  34. DIART [Concomitant]
     Active Substance: AZOSEMIDE
     Indication: PRODUCT USED FOR UNKNOWN INDICATION
     Dosage: 30 MG, QD
     Route: 048
     Dates: start: 20160222, end: 20160224
  35. ZOLPIDEM TARTRATE. [Concomitant]
     Active Substance: ZOLPIDEM TARTRATE
     Dosage: 10 MG, QD
     Route: 048
     Dates: start: 20160226, end: 20160302
  36. CERNILTON [Concomitant]
     Active Substance: HERBALS
     Indication: PRODUCT USED FOR UNKNOWN INDICATION
     Dosage: 1 DF, TID
     Route: 048
     Dates: start: 20160222, end: 20160224
  37. MAGMITT [Concomitant]
     Active Substance: MAGNESIUM OXIDE
     Dosage: 500 MG, TID
     Route: 048
     Dates: start: 20160224, end: 20160224
  38. MAGMITT [Concomitant]
     Active Substance: MAGNESIUM OXIDE
     Dosage: 500 MG, TID
     Route: 048
     Dates: start: 20160302, end: 20160303
  39. NORMAL SALINE [Concomitant]
     Active Substance: SODIUM CHLORIDE
     Dosage: 140 ML, QD
     Route: 051
     Dates: start: 20160228, end: 20160228
  40. NORMAL SALINE [Concomitant]
     Active Substance: SODIUM CHLORIDE
     Dosage: 90 ML, QD
     Route: 051
     Dates: start: 20160229, end: 20160229
  41. NORMAL SALINE [Concomitant]
     Active Substance: SODIUM CHLORIDE
     Dosage: 200 ML, QD
     Route: 051
     Dates: start: 20160305, end: 20160305
  42. OMEPRAZOLE. [Concomitant]
     Active Substance: OMEPRAZOLE
     Indication: PRODUCT USED FOR UNKNOWN INDICATION
     Dosage: 20 MG, QD
     Route: 051
     Dates: start: 20160225, end: 20160226
  43. SOLDEM 3A [Concomitant]
     Active Substance: CARBOHYDRATES\POTASSIUM CHLORIDE\SODIUM CHLORIDE\SODIUM LACTATE
     Dosage: 1000 ML, QD
     Route: 051
     Dates: start: 20160304, end: 20160304
  44. SOLDEM 3A [Concomitant]
     Active Substance: CARBOHYDRATES\POTASSIUM CHLORIDE\SODIUM CHLORIDE\SODIUM LACTATE
     Dosage: 500 ML, QD
     Route: 051
     Dates: start: 20160305, end: 20160308
  45. DOPAMINE HYDROCHLORIDE. [Concomitant]
     Active Substance: DOPAMINE HYDROCHLORIDE
     Indication: PRODUCT USED FOR UNKNOWN INDICATION
     Dosage: 600 MG, QD
     Route: 041
     Dates: start: 20160226, end: 20160226
  46. CEFTRIAXONE NA [Concomitant]
     Active Substance: CEFTRIAXONE
     Dosage: 2 G, QD
     Route: 041
     Dates: start: 20160305, end: 20160307
  47. NOVASTAN [Suspect]
     Active Substance: ARGATROBAN
     Dosage: 0.238 UG/KG,1 MIN, QD
     Route: 041
     Dates: start: 20160229, end: 20160301
  48. NOVASTAN [Suspect]
     Active Substance: ARGATROBAN
     Dosage: 0.167 UG/KG,1 MIN, QD
     Route: 041
     Dates: start: 20160301, end: 20160302
  49. NOVASTAN [Suspect]
     Active Substance: ARGATROBAN
     Dosage: 0.476 UG/KG,1 MIN, QD
     Route: 041
     Dates: start: 20160303, end: 20160303
  50. NOVASTAN [Suspect]
     Active Substance: ARGATROBAN
     Dosage: 0.357 UG/KG,1 MIN, QD
     Route: 041
     Dates: start: 20160303, end: 20160304
  51. HEPARIN SODIUM. [Concomitant]
     Active Substance: HEPARIN SODIUM
     Indication: DEEP VEIN THROMBOSIS
     Route: 051
  52. ATORVASTATIN [Concomitant]
     Active Substance: ATORVASTATIN
     Dosage: 10 MG, QD
     Route: 048
     Dates: start: 20160226, end: 20160326
  53. DIART [Concomitant]
     Active Substance: AZOSEMIDE
     Dosage: 30 MG, QD
     Route: 048
     Dates: start: 20160226, end: 20160303
  54. NEXIUM [Concomitant]
     Active Substance: ESOMEPRAZOLE MAGNESIUM
     Indication: PRODUCT USED FOR UNKNOWN INDICATION
     Dosage: 20 MG, QD
     Route: 048
     Dates: start: 20160222, end: 20160224
  55. ZOLPIDEM TARTRATE. [Concomitant]
     Active Substance: ZOLPIDEM TARTRATE
     Indication: PRODUCT USED FOR UNKNOWN INDICATION
     Dosage: 10 MG, QD
     Route: 048
     Dates: start: 20160222, end: 20160224
  56. NOVORAPID [Concomitant]
     Active Substance: INSULIN ASPART
     Dosage: 30 IU, QD
     Route: 051
     Dates: start: 20160306, end: 20160316
  57. NORMAL SALINE [Concomitant]
     Active Substance: SODIUM CHLORIDE
     Dosage: 190 ML, QD
     Route: 051
     Dates: start: 20160308, end: 20160308
  58. SOLDEM 3A [Concomitant]
     Active Substance: CARBOHYDRATES\POTASSIUM CHLORIDE\SODIUM CHLORIDE\SODIUM LACTATE
     Dosage: 1000 ML, QD
     Route: 051
     Dates: start: 20160226, end: 20160227
  59. SOLU-CORTEF [Concomitant]
     Active Substance: HYDROCORTISONE SODIUM SUCCINATE
     Dosage: 50 MG, QD
     Route: 051
     Dates: start: 20160227, end: 20160227
  60. PRECEDEX [Concomitant]
     Active Substance: DEXMEDETOMIDINE HYDROCHLORIDE
     Indication: PRODUCT USED FOR UNKNOWN INDICATION
     Dosage: 200 UG, QD
     Route: 042
     Dates: start: 20160225, end: 20160226
  61. SPIRONOLACTONE. [Concomitant]
     Active Substance: SPIRONOLACTONE
     Indication: PRODUCT USED FOR UNKNOWN INDICATION
     Dosage: 12.5 MG, QD
     Route: 048
     Dates: start: 20160222, end: 20160224
  62. DIART [Concomitant]
     Active Substance: AZOSEMIDE
     Dosage: 30 MG, QD
     Route: 048
     Dates: start: 20160308, end: 20160326
  63. NOVORAPID [Concomitant]
     Active Substance: INSULIN ASPART
     Dosage: 28 IU, QD
     Route: 051
     Dates: start: 20160303, end: 20160305
  64. ESLAX [Concomitant]
     Active Substance: ROCURONIUM BROMIDE
     Indication: PRODUCT USED FOR UNKNOWN INDICATION
     Dosage: 300 MG, QD
     Route: 042
     Dates: start: 20160225, end: 20160225
  65. NORMAL SALINE [Concomitant]
     Active Substance: SODIUM CHLORIDE
     Indication: PRODUCT USED FOR UNKNOWN INDICATION
     Dosage: 818 ML, QD
     Route: 051
     Dates: start: 20160225, end: 20160225
  66. NORMAL SALINE [Concomitant]
     Active Substance: SODIUM CHLORIDE
     Dosage: 150 ML, QD
     Route: 051
     Dates: start: 20160304, end: 20160304
  67. NORMAL SALINE [Concomitant]
     Active Substance: SODIUM CHLORIDE
     Dosage: 200 ML, QD
     Route: 051
     Dates: start: 20160307, end: 20160307
  68. SOLDEM 3A [Concomitant]
     Active Substance: CARBOHYDRATES\POTASSIUM CHLORIDE\SODIUM CHLORIDE\SODIUM LACTATE
     Indication: PRODUCT USED FOR UNKNOWN INDICATION
     Dosage: 500 ML, QD
     Route: 051
     Dates: start: 20160225, end: 20160225
  69. SOLU-CORTEF [Concomitant]
     Active Substance: HYDROCORTISONE SODIUM SUCCINATE
     Dosage: 25 MG, QD
     Route: 051
     Dates: start: 20160228, end: 20160228
  70. NIFEDIPINE L [Concomitant]
     Indication: PRODUCT USED FOR UNKNOWN INDICATION
     Dosage: 40 MG, QD
     Route: 048
     Dates: start: 20160228, end: 20160228
  71. AVAPRO [Concomitant]
     Active Substance: IRBESARTAN
     Indication: PRODUCT USED FOR UNKNOWN INDICATION
     Dosage: 100 MG, QD
     Route: 048
     Dates: start: 20160222, end: 20160224
  72. ZETIA [Concomitant]
     Active Substance: EZETIMIBE
     Indication: PRODUCT USED FOR UNKNOWN INDICATION
     Dosage: 10 MG, QD
     Route: 048
     Dates: start: 20160222, end: 20160224
  73. SALOBEL [Concomitant]
     Active Substance: ALLOPURINOL
     Indication: PRODUCT USED FOR UNKNOWN INDICATION
     Dosage: 100 MG, QD
     Route: 048
     Dates: start: 20160222, end: 20160224
  74. FLIVAS [Concomitant]
     Active Substance: NAFTOPIDIL
     Indication: PRODUCT USED FOR UNKNOWN INDICATION
     Dosage: 75 MG, QD
     Route: 048
     Dates: start: 20160222, end: 20160224
  75. FLIVAS [Concomitant]
     Active Substance: NAFTOPIDIL
     Dosage: 75 MG, QD
     Route: 048
     Dates: start: 20160226, end: 20160326
  76. NITRAZEPAM [Concomitant]
     Active Substance: NITRAZEPAM
     Indication: PRODUCT USED FOR UNKNOWN INDICATION
     Dosage: 2.5 MG, QD
     Route: 048
     Dates: start: 20160222, end: 20160224
  77. NITRAZEPAM [Concomitant]
     Active Substance: NITRAZEPAM
     Dosage: 2.5 MG, QD
     Route: 048
     Dates: start: 20160226, end: 20160301
  78. CERNILTON [Concomitant]
     Active Substance: HERBALS
     Dosage: 1 DF, TID
     Route: 048
     Dates: start: 20160226, end: 20160326
  79. MAGMITT [Concomitant]
     Active Substance: MAGNESIUM OXIDE
     Dosage: 500 MG, BID
     Route: 048
     Dates: start: 20160301, end: 20160301
  80. HUMULIN R [Concomitant]
     Active Substance: INSULIN HUMAN
     Indication: PRODUCT USED FOR UNKNOWN INDICATION
     Dosage: 3 IU, QD
     Route: 051
     Dates: start: 20160225, end: 20160225
  81. HUMULIN R [Concomitant]
     Active Substance: INSULIN HUMAN
     Dosage: 4 IU, QD
     Route: 051
     Dates: start: 20160306, end: 20160308
  82. NICARDIPINE [Concomitant]
     Active Substance: NICARDIPINE
     Indication: PRODUCT USED FOR UNKNOWN INDICATION
     Dosage: 50 MG, QD
     Route: 051
     Dates: start: 20160225, end: 20160226
  83. WARFARIN [Concomitant]
     Active Substance: WARFARIN
     Dosage: 2.25 MG, QD
     Route: 048
     Dates: start: 20160307, end: 20160311
  84. WARFARIN [Concomitant]
     Active Substance: WARFARIN
     Dosage: 1 MG, QD
     Route: 048
     Dates: start: 20160321, end: 20160323
  85. NOVASTAN [Suspect]
     Active Substance: ARGATROBAN
     Indication: HEPARIN-INDUCED THROMBOCYTOPENIA
     Dosage: 0.476 UG/KG,1 MIN, QD
     Route: 041
     Dates: start: 20160226, end: 20160228
  86. NOVASTAN [Suspect]
     Active Substance: ARGATROBAN
     Dosage: 0.238 UG/KG,1 MIN, QD
     Route: 041
     Dates: start: 20160229, end: 20160229
  87. NOVASTAN [Suspect]
     Active Substance: ARGATROBAN
     Dosage: 0.309 UG/KG,1 MIN, QD
     Route: 041
     Dates: start: 20160304, end: 20160308
  88. NOVORAPID [Concomitant]
     Active Substance: INSULIN ASPART
     Indication: PRODUCT USED FOR UNKNOWN INDICATION
     Dosage: 26 IU, QD
     Route: 051
     Dates: start: 20160224, end: 20160224
  89. NOVORAPID [Concomitant]
     Active Substance: INSULIN ASPART
     Dosage: 26 IU, QD
     Route: 051
     Dates: start: 20160301, end: 20160302
  90. ULTIVA [Concomitant]
     Active Substance: REMIFENTANIL HYDROCHLORIDE
     Indication: PRODUCT USED FOR UNKNOWN INDICATION
     Dosage: 10 MG, QD
     Route: 042
     Dates: start: 20160225, end: 20160225
  91. NORMAL SALINE [Concomitant]
     Active Substance: SODIUM CHLORIDE
     Dosage: 308 ML, QD
     Route: 051
     Dates: start: 20160226, end: 20160226
  92. NORMAL SALINE [Concomitant]
     Active Substance: SODIUM CHLORIDE
     Dosage: 100 ML, QD
     Route: 051
     Dates: start: 20160227, end: 20160227
  93. LACTEC [Concomitant]
     Active Substance: CALCIUM CHLORIDE ANHYDROUS\POTASSIUM CHLORIDE\SODIUM CHLORIDE\SODIUM LACTATE
     Indication: PRODUCT USED FOR UNKNOWN INDICATION
     Dosage: 1500 ML, QD
     Route: 051
     Dates: start: 20160225, end: 20160226
  94. SOLDEM 3A [Concomitant]
     Active Substance: CARBOHYDRATES\POTASSIUM CHLORIDE\SODIUM CHLORIDE\SODIUM LACTATE
     Dosage: 500 ML, QD
     Route: 051
     Dates: start: 20160228, end: 20160229
  95. WARFARIN [Concomitant]
     Active Substance: WARFARIN
     Dosage: 2 MG, QD
     Route: 048
     Dates: start: 20160304, end: 20160306
  96. KAYTWO N [Concomitant]
     Active Substance: MENATETRENONE
     Indication: PRODUCT USED FOR UNKNOWN INDICATION
     Dosage: 10 MG, QD
     Route: 042
     Dates: start: 20160228, end: 20160228

REACTIONS (2)
  - Rash [Recovered/Resolved]
  - Cerebral infarction [Recovering/Resolving]

NARRATIVE: CASE EVENT DATE: 20160303
